FAERS Safety Report 10052080 (Version 9)
Quarter: 2015Q4

REPORT INFORMATION
  Report Type: Report from Study
  Country: DE (occurrence: DE)
  Receive Date: 20140402
  Receipt Date: 20151102
  Transmission Date: 20160304
  Serious: Yes (Hospitalization)
  Sender: FDA-Public Use
  Company Number: DE-ROCHE-1369629

PATIENT
  Age: 32 Year
  Sex: Female
  Weight: 62 kg

DRUGS (19)
  1. CARBOPLATIN. [Suspect]
     Active Substance: CARBOPLATIN
     Indication: OVARIAN CANCER
     Dosage: AUC 5?DATE OF LAST DOSE TAKEN PRIOR TO ONSET OF SAE: 10/MAR/2014
     Route: 042
     Dates: start: 20131111
  2. CARBOPLATIN. [Suspect]
     Active Substance: CARBOPLATIN
     Route: 042
     Dates: start: 20140217
  3. PACLITAXEL. [Suspect]
     Active Substance: PACLITAXEL
     Route: 042
     Dates: start: 20140106
  4. PANTOPRAZOLE [Concomitant]
     Active Substance: PANTOPRAZOLE SODIUM
     Route: 048
     Dates: start: 20140106
  5. PACLITAXEL. [Suspect]
     Active Substance: PACLITAXEL
     Indication: OVARIAN CANCER
     Dosage: DATE OF LAST DOSE TAKEN PRIOR TO ONSET OF SAE: 10/MAR/2014
     Route: 042
     Dates: start: 20131111
  6. PACLITAXEL. [Suspect]
     Active Substance: PACLITAXEL
     Route: 042
     Dates: start: 20140127
  7. PACLITAXEL. [Suspect]
     Active Substance: PACLITAXEL
     Route: 042
     Dates: start: 20140217
  8. ACC LONG [Concomitant]
     Indication: COUGH
     Route: 048
     Dates: start: 201404, end: 201404
  9. CARBOPLATIN. [Suspect]
     Active Substance: CARBOPLATIN
     Route: 042
     Dates: start: 20131213
  10. CARBOPLATIN. [Suspect]
     Active Substance: CARBOPLATIN
     Route: 042
     Dates: start: 20140310
  11. BEVACIZUMAB [Suspect]
     Active Substance: BEVACIZUMAB
     Route: 042
     Dates: end: 20140626
  12. KONAKION [Concomitant]
     Active Substance: PHYTONADIONE
     Route: 048
     Dates: start: 201404, end: 201404
  13. PACLITAXEL. [Suspect]
     Active Substance: PACLITAXEL
     Route: 042
     Dates: start: 20131213
  14. PACLITAXEL. [Suspect]
     Active Substance: PACLITAXEL
     Route: 042
     Dates: start: 20140310
  15. CARBOPLATIN. [Suspect]
     Active Substance: CARBOPLATIN
     Route: 042
     Dates: start: 20140106
  16. L-THYROXINE [Concomitant]
     Active Substance: LEVOTHYROXINE
     Indication: HYPOTHYROIDISM
     Route: 048
     Dates: start: 2013
  17. CARBOPLATIN. [Suspect]
     Active Substance: CARBOPLATIN
     Route: 042
     Dates: start: 20140127
  18. LOPEDIUM [Concomitant]
     Active Substance: LOPERAMIDE
     Route: 048
     Dates: start: 2014, end: 2014
  19. BEVACIZUMAB [Suspect]
     Active Substance: BEVACIZUMAB
     Indication: OVARIAN CANCER
     Dosage: DATE OF LAST DOSE TAKEN PROIER TO ONSET OF SAE: 10/MAR/2014
     Route: 042
     Dates: start: 20131111

REACTIONS (6)
  - Pyrexia [Recovered/Resolved]
  - Seroma [Recovered/Resolved]
  - Hydronephrosis [Recovered/Resolved]
  - General physical health deterioration [Unknown]
  - Urinary tract obstruction [Not Recovered/Not Resolved]
  - Lymphocele [Not Recovered/Not Resolved]

NARRATIVE: CASE EVENT DATE: 20140218
